FAERS Safety Report 14973386 (Version 3)
Quarter: 2018Q2

REPORT INFORMATION
  Report Type: Report from Study
  Country: DE (occurrence: DE)
  Receive Date: 20180605
  Receipt Date: 20180620
  Transmission Date: 20180711
  Serious: Yes (Hospitalization, Other)
  Sender: FDA-Public Use
  Company Number: DE-SA-2018SA141123

PATIENT
  Age: 68 Year
  Sex: Female
  Weight: 49 kg

DRUGS (107)
  1. FLUOROURACIL. [Suspect]
     Active Substance: FLUOROURACIL
     Dosage: 3816 UNK
     Route: 042
     Dates: start: 20170511, end: 20170513
  2. FLUOROURACIL. [Suspect]
     Active Substance: FLUOROURACIL
     Dosage: 3816 UNK
     Route: 042
     Dates: start: 20171004, end: 20171006
  3. FLUOROURACIL. [Suspect]
     Active Substance: FLUOROURACIL
     Dosage: 636 UNK
     Route: 042
     Dates: start: 20170613, end: 20170613
  4. FLUOROURACIL. [Suspect]
     Active Substance: FLUOROURACIL
     Dosage: 636 UNK
     Route: 042
     Dates: start: 20170627, end: 20170627
  5. FLUOROURACIL. [Suspect]
     Active Substance: FLUOROURACIL
     Dosage: 3816 MG, UNK
     Route: 042
     Dates: start: 20180208, end: 20180210
  6. FOLINIC ACID [Suspect]
     Active Substance: LEUCOVORIN
     Dosage: 636 UNK
     Route: 042
     Dates: start: 20180322, end: 20180322
  7. FOLINIC ACID [Suspect]
     Active Substance: LEUCOVORIN
     Dosage: 636 UNK
     Route: 042
     Dates: start: 20170808, end: 20170808
  8. OXALIPLATIN. [Suspect]
     Active Substance: OXALIPLATIN
     Dosage: 135 UNK
     Route: 042
     Dates: start: 20170427, end: 20170427
  9. OXALIPLATIN. [Suspect]
     Active Substance: OXALIPLATIN
     Dosage: 135 MG, UNK
     Route: 042
     Dates: start: 20170725, end: 20170725
  10. RINGERS SOLUTION [Concomitant]
     Active Substance: CALCIUM CHLORIDE\POTASSIUM CHLORIDE\SODIUM CHLORIDE
     Dosage: UNK
     Dates: start: 20180406, end: 20180406
  11. ONDANSETRON [Concomitant]
     Active Substance: ONDANSETRON
     Dosage: UNK
     Dates: start: 20170217
  12. FLUOROURACIL. [Suspect]
     Active Substance: FLUOROURACIL
     Indication: ADENOCARCINOMA GASTRIC
     Dosage: 3816 UNK
     Route: 042
     Dates: start: 20170302, end: 20170304
  13. FLUOROURACIL. [Suspect]
     Active Substance: FLUOROURACIL
     Dosage: 3816 UNK
     Route: 042
     Dates: start: 20170427, end: 20170429
  14. FLUOROURACIL. [Suspect]
     Active Substance: FLUOROURACIL
     Dosage: 3816 UNK
     Route: 042
     Dates: start: 20170627, end: 20170629
  15. FLUOROURACIL. [Suspect]
     Active Substance: FLUOROURACIL
     Dosage: 3816 UNK
     Route: 042
     Dates: start: 20180125, end: 20180127
  16. FLUOROURACIL. [Suspect]
     Active Substance: FLUOROURACIL
     Dosage: 636 UNK
     Route: 042
     Dates: start: 20170413, end: 20170413
  17. FLUOROURACIL. [Suspect]
     Active Substance: FLUOROURACIL
     Dosage: 636 UNK
     Route: 042
     Dates: start: 20170711, end: 20170711
  18. FLUOROURACIL. [Suspect]
     Active Substance: FLUOROURACIL
     Dosage: 636 UNK
     Route: 042
     Dates: start: 20171128, end: 20171128
  19. FOLINIC ACID [Suspect]
     Active Substance: LEUCOVORIN
     Dosage: 636 MG, UNK
     Route: 042
     Dates: start: 20180405, end: 20180405
  20. FOLINIC ACID [Suspect]
     Active Substance: LEUCOVORIN
     Dosage: 636 MG, UNK
     Route: 042
     Dates: start: 20170330, end: 20170330
  21. FOLINIC ACID [Suspect]
     Active Substance: LEUCOVORIN
     Dosage: 636 MG, UNK
     Route: 042
     Dates: start: 20170822, end: 20170822
  22. TRAMAL [Suspect]
     Active Substance: TRAMADOL
     Dosage: UNK UNK, UNK
  23. PANTOPRAZOLE [Concomitant]
     Active Substance: PANTOPRAZOLE
     Dosage: UNK
     Dates: start: 20170215
  24. NEUROTRAT B12 [Concomitant]
     Dosage: UNK
     Dates: start: 20180125
  25. ADDEL N [CHROMIC CHLORIDE;COPPER CHLORIDE DIHYDRATE;FERRIC CHLORIDE HE [Concomitant]
     Dosage: UNK
     Dates: start: 20180406, end: 20180406
  26. INNOHEP [Concomitant]
     Active Substance: TINZAPARIN SODIUM
     Dosage: UNK
     Dates: start: 20170424
  27. FLUOROURACIL. [Suspect]
     Active Substance: FLUOROURACIL
     Dosage: 3816 UNK
     Route: 042
     Dates: start: 20170530, end: 20170601
  28. FLUOROURACIL. [Suspect]
     Active Substance: FLUOROURACIL
     Dosage: 3816 UNK
     Route: 042
     Dates: start: 20170808, end: 20170810
  29. FLUOROURACIL. [Suspect]
     Active Substance: FLUOROURACIL
     Dosage: 3816 UNK
     Route: 042
     Dates: start: 20170919, end: 20170921
  30. FLUOROURACIL. [Suspect]
     Active Substance: FLUOROURACIL
     Dosage: 3816 UNK
     Route: 042
     Dates: start: 20171212, end: 20171214
  31. FLUOROURACIL. [Suspect]
     Active Substance: FLUOROURACIL
     Dosage: 636 UNK
     Route: 042
     Dates: start: 20180222, end: 20180222
  32. FLUOROURACIL. [Suspect]
     Active Substance: FLUOROURACIL
     Dosage: 636 UNK
     Route: 042
     Dates: start: 20171017, end: 20171017
  33. FLUOROURACIL. [Suspect]
     Active Substance: FLUOROURACIL
     Dosage: 636 UNK
     Route: 042
     Dates: start: 20171114, end: 20171114
  34. FLUOROURACIL. [Suspect]
     Active Substance: FLUOROURACIL
     Dosage: 3816 MG, UNK
     Route: 042
     Dates: start: 20180222, end: 20180224
  35. FOLINIC ACID [Suspect]
     Active Substance: LEUCOVORIN
     Dosage: 636 UNK
     Route: 042
     Dates: start: 20170413, end: 20170413
  36. FOLINIC ACID [Suspect]
     Active Substance: LEUCOVORIN
     Dosage: 636 UNK
     Route: 042
     Dates: start: 20170711, end: 20170711
  37. FOLINIC ACID [Suspect]
     Active Substance: LEUCOVORIN
     Dosage: 636 MG
     Route: 042
     Dates: start: 20171004, end: 20171004
  38. FOLINIC ACID [Suspect]
     Active Substance: LEUCOVORIN
     Dosage: 636 UNK
     Route: 042
     Dates: start: 20171212, end: 20171212
  39. LYRICA [Concomitant]
     Active Substance: PREGABALIN
     Dosage: UNK
     Dates: start: 20180110
  40. FENTANYL. [Concomitant]
     Active Substance: FENTANYL
     Dosage: UNK
     Dates: start: 20170227
  41. SYMBICORT [Concomitant]
     Active Substance: BUDESONIDE\FORMOTEROL FUMARATE DIHYDRATE
     Dosage: UNK
     Dates: start: 20170511
  42. FLUOROURACIL. [Suspect]
     Active Substance: FLUOROURACIL
     Dosage: 3816 UNK
     Route: 042
     Dates: start: 20171017, end: 20171019
  43. FLUOROURACIL. [Suspect]
     Active Substance: FLUOROURACIL
     Dosage: 636 UNK
     Route: 042
     Dates: start: 20180405, end: 20180405
  44. FLUOROURACIL. [Suspect]
     Active Substance: FLUOROURACIL
     Dosage: 636 UNK
     Route: 042
     Dates: start: 20170427, end: 20170427
  45. FLUOROURACIL. [Suspect]
     Active Substance: FLUOROURACIL
     Dosage: 636 UNK
     Route: 042
     Dates: start: 20170725, end: 20170725
  46. FLUOROURACIL. [Suspect]
     Active Substance: FLUOROURACIL
     Dosage: 636 UNK
     Route: 042
     Dates: start: 20170808, end: 20170808
  47. FOLINIC ACID [Suspect]
     Active Substance: LEUCOVORIN
     Indication: ADENOCARCINOMA GASTRIC
     Dosage: 636 MG, UNK
     Route: 042
     Dates: start: 20180222, end: 20180222
  48. FOLINIC ACID [Suspect]
     Active Substance: LEUCOVORIN
     Dosage: 636 UNK
     Route: 042
     Dates: start: 20170316, end: 20170316
  49. FOLINIC ACID [Suspect]
     Active Substance: LEUCOVORIN
     Dosage: 636 MG, UNK
     Route: 042
     Dates: start: 20171017, end: 20171017
  50. FOLINIC ACID [Suspect]
     Active Substance: LEUCOVORIN
     Dosage: 636 UNK
     Route: 042
     Dates: start: 20171128, end: 20171128
  51. FOLINIC ACID [Suspect]
     Active Substance: LEUCOVORIN
     Dosage: 636 UNK
     Route: 042
     Dates: start: 20180208, end: 20180208
  52. NOVAMINSULFON INJEKT [Suspect]
     Active Substance: METAMIZOLE SODIUM
     Indication: ABDOMINAL PAIN UPPER
     Dosage: UNK UNK, UNK
     Route: 042
     Dates: start: 20180109
  53. OXALIPLATIN. [Suspect]
     Active Substance: OXALIPLATIN
     Dosage: 135 UNK
     Route: 042
     Dates: start: 20170302, end: 20170302
  54. OXALIPLATIN. [Suspect]
     Active Substance: OXALIPLATIN
     Dosage: 135 UNK
     Route: 042
     Dates: start: 20170711, end: 20170711
  55. DICLOFENAC [Suspect]
     Active Substance: DICLOFENAC
     Dosage: UNK UNK, UNK
  56. XARELTO [Concomitant]
     Active Substance: RIVAROXABAN
     Dosage: UNK
     Dates: start: 20170809
  57. LAXANS AL [Concomitant]
     Dosage: UNK
     Dates: start: 2007
  58. FLUOROURACIL. [Suspect]
     Active Substance: FLUOROURACIL
     Dosage: 3816 UNK
     Route: 042
     Dates: start: 20170330, end: 20170401
  59. FLUOROURACIL. [Suspect]
     Active Substance: FLUOROURACIL
     Dosage: 3816 UNK
     Route: 042
     Dates: start: 20170711, end: 20170713
  60. FLUOROURACIL. [Suspect]
     Active Substance: FLUOROURACIL
     Dosage: 3816 UNK
     Route: 042
     Dates: start: 20171101, end: 20171103
  61. FLUOROURACIL. [Suspect]
     Active Substance: FLUOROURACIL
     Dosage: 636 UNK
     Route: 042
     Dates: start: 20170330, end: 20170330
  62. FLUOROURACIL. [Suspect]
     Active Substance: FLUOROURACIL
     Dosage: 636 UNK
     Route: 042
     Dates: start: 20170530, end: 20170530
  63. FLUOROURACIL. [Suspect]
     Active Substance: FLUOROURACIL
     Dosage: 636 UNK
     Route: 042
     Dates: start: 20171004, end: 20171004
  64. FOLINIC ACID [Suspect]
     Active Substance: LEUCOVORIN
     Dosage: 636 UNK
     Route: 042
     Dates: start: 20170302, end: 20170302
  65. FOLINIC ACID [Suspect]
     Active Substance: LEUCOVORIN
     Dosage: 636 UNK
     Route: 042
     Dates: start: 20170530, end: 20170530
  66. FOLINIC ACID [Suspect]
     Active Substance: LEUCOVORIN
     Dosage: 636 UNK
     Route: 042
     Dates: start: 20170613, end: 20170613
  67. FOLINIC ACID [Suspect]
     Active Substance: LEUCOVORIN
     Dosage: 636 UNK
     Route: 042
     Dates: start: 20170627, end: 20170627
  68. FOLINIC ACID [Suspect]
     Active Substance: LEUCOVORIN
     Dosage: 636 MG, UNK
     Route: 042
     Dates: start: 20171114, end: 20171114
  69. OXALIPLATIN. [Suspect]
     Active Substance: OXALIPLATIN
     Indication: ADENOCARCINOMA GASTRIC
     Dosage: 135 MG, UNK
     Route: 042
     Dates: start: 20170330, end: 20170330
  70. OXALIPLATIN. [Suspect]
     Active Substance: OXALIPLATIN
     Dosage: 135,UNK
     Route: 042
     Dates: start: 20170413, end: 20170413
  71. OXALIPLATIN. [Suspect]
     Active Substance: OXALIPLATIN
     Dosage: 135 UNK
     Route: 042
     Dates: start: 20170627, end: 20170627
  72. DUROGESIC SMAT [Concomitant]
     Active Substance: FENTANYL
     Dosage: UNK
     Dates: start: 20170221
  73. CENTRUM A TO ZINC [Concomitant]
     Dosage: UNK
     Dates: start: 20180105
  74. FLUOROURACIL. [Suspect]
     Active Substance: FLUOROURACIL
     Dosage: 3816 UNK
     Route: 042
     Dates: start: 20170822, end: 20170824
  75. FLUOROURACIL. [Suspect]
     Active Substance: FLUOROURACIL
     Dosage: 636 UNK
     Route: 042
     Dates: start: 20170302, end: 20170302
  76. FLUOROURACIL. [Suspect]
     Active Substance: FLUOROURACIL
     Dosage: 636 UNK
     Route: 042
     Dates: start: 20171101, end: 20171101
  77. FLUOROURACIL. [Suspect]
     Active Substance: FLUOROURACIL
     Dosage: 636 UNK
     Route: 042
     Dates: start: 20170316, end: 20170316
  78. FOLINIC ACID [Suspect]
     Active Substance: LEUCOVORIN
     Dosage: 636 UNK
     Route: 042
     Dates: start: 20170427, end: 20170427
  79. FOLINIC ACID [Suspect]
     Active Substance: LEUCOVORIN
     Dosage: 636 UNK
     Route: 042
     Dates: start: 20170511, end: 20170511
  80. FOLINIC ACID [Suspect]
     Active Substance: LEUCOVORIN
     Dosage: 636 UNK
     Route: 042
     Dates: start: 20170919, end: 20170919
  81. OXALIPLATIN. [Suspect]
     Active Substance: OXALIPLATIN
     Dosage: 135 UNK
     Route: 042
     Dates: start: 20170530, end: 20170530
  82. CLEXANE [Suspect]
     Active Substance: ENOXAPARIN SODIUM
     Dosage: UNK UNK, UNK
  83. MAGNESIUM [Concomitant]
     Active Substance: MAGNESIUM
     Dosage: UNK
     Dates: start: 19980101
  84. KREON [Concomitant]
     Active Substance: PANCRELIPASE
     Dosage: UNK
     Dates: start: 20150603
  85. FLUOROURACIL. [Suspect]
     Active Substance: FLUOROURACIL
     Dosage: 3816 UNK
     Route: 042
     Dates: start: 20170413, end: 20170415
  86. FLUOROURACIL. [Suspect]
     Active Substance: FLUOROURACIL
     Dosage: 3816 UNK
     Route: 042
     Dates: start: 20170613, end: 20170615
  87. FLUOROURACIL. [Suspect]
     Active Substance: FLUOROURACIL
     Dosage: 3816 UNK
     Route: 042
     Dates: start: 20180322, end: 20180324
  88. FOLINIC ACID [Suspect]
     Active Substance: LEUCOVORIN
     Dosage: 636 UNK
     Route: 042
     Dates: start: 20170725, end: 20170725
  89. OXALIPLATIN. [Suspect]
     Active Substance: OXALIPLATIN
     Dosage: 135 UNK
     Route: 042
     Dates: start: 20170511, end: 20170511
  90. OXALIPLATIN. [Suspect]
     Active Substance: OXALIPLATIN
     Dosage: 135 MG, UNK
     Route: 042
     Dates: start: 20170613, end: 20170613
  91. PERFALGAN [Suspect]
     Active Substance: ACETAMINOPHEN
     Dosage: UNK UNK, UNK
  92. METOCLOPRAMID [METOCLOPRAMIDE HYDROCHLORIDE] [Concomitant]
     Dosage: UNK
     Dates: start: 20180110
  93. FLUOROURACIL. [Suspect]
     Active Substance: FLUOROURACIL
     Dosage: 3816 UNK
     Route: 042
     Dates: start: 20170725, end: 20170727
  94. FLUOROURACIL. [Suspect]
     Active Substance: FLUOROURACIL
     Dosage: 3816 UNK
     Route: 042
     Dates: start: 20171114, end: 20171116
  95. FLUOROURACIL. [Suspect]
     Active Substance: FLUOROURACIL
     Dosage: 3816 UNK
     Route: 042
     Dates: start: 20171128, end: 20171130
  96. FLUOROURACIL. [Suspect]
     Active Substance: FLUOROURACIL
     Dosage: 636 UNK
     Route: 042
     Dates: start: 20170302, end: 20170302
  97. FLUOROURACIL. [Suspect]
     Active Substance: FLUOROURACIL
     Dosage: 636 UNK
     Route: 042
     Dates: start: 20170511, end: 20170511
  98. FLUOROURACIL. [Suspect]
     Active Substance: FLUOROURACIL
     Dosage: 636 UNK
     Route: 042
     Dates: start: 20170822, end: 20170822
  99. FLUOROURACIL. [Suspect]
     Active Substance: FLUOROURACIL
     Dosage: 636 UNK
     Route: 042
     Dates: start: 20170919, end: 20170919
  100. FLUOROURACIL. [Suspect]
     Active Substance: FLUOROURACIL
     Dosage: 3816 UNK
     Route: 042
     Dates: start: 20180308, end: 20180310
  101. FLUOROURACIL. [Suspect]
     Active Substance: FLUOROURACIL
     Dosage: 3816 UNK
     Route: 042
     Dates: start: 20180405, end: 20180407
  102. FOLINIC ACID [Suspect]
     Active Substance: LEUCOVORIN
     Dosage: 636 UNK
     Route: 042
     Dates: start: 20180308, end: 20180308
  103. FOLINIC ACID [Suspect]
     Active Substance: LEUCOVORIN
     Dosage: 636 UNK
     Route: 042
     Dates: start: 20171101, end: 20171101
  104. FOLINIC ACID [Suspect]
     Active Substance: LEUCOVORIN
     Dosage: 636 UNK
     Route: 042
     Dates: start: 20180125, end: 20180125
  105. OXALIPLATIN. [Suspect]
     Active Substance: OXALIPLATIN
     Dosage: 135 MG, UNK
     Route: 042
     Dates: start: 20170316, end: 20170316
  106. MOVICOL [Concomitant]
     Active Substance: POLYETHYLENE GLYCOL 3350\POTASSIUM CHLORIDE\SODIUM BICARBONATE\SODIUM CHLORIDE
     Dosage: UNK
     Dates: start: 2007
  107. CERNEVIT [ASCORBIC ACID;BIOTIN;COCARBOXYLASE TETRAHYDRATE;COLECALCIFER [Concomitant]
     Dosage: UNK
     Dates: start: 20180406, end: 20180406

REACTIONS (1)
  - Hip fracture [Recovered/Resolved]

NARRATIVE: CASE EVENT DATE: 20180506
